FAERS Safety Report 6185445-4 (Version None)
Quarter: 2009Q2

REPORT INFORMATION
  Report Type: 
  Country: None (occurrence: None)
  Receive Date: 20090511
  Receipt Date: 20090430
  Transmission Date: 20091009
  Serious: Yes (Hospitalization)
  Sender: FDA-Public Use
  Company Number: CA-ELI_LILLY_AND_COMPANY-CA200903007451

PATIENT
  Age: 40 Year
  Sex: Female

DRUGS (4)
  1. CYMBALTA [Suspect]
     Indication: DEPRESSION
     Dosage: 60 MG, UNK
     Dates: start: 20090201, end: 20090304
  2. RISPERIDONE [Concomitant]
  3. CARBAMAZEPINE [Concomitant]
     Indication: MOOD ALTERED
     Dosage: 200 MG, 2/D
     Dates: start: 20090201, end: 20090304
  4. ZOPICLONE [Concomitant]
     Indication: SLEEP DISORDER
     Dosage: 7.5 MG, UNK

REACTIONS (2)
  - CONTUSION [None]
  - PLATELET COUNT DECREASED [None]
